FAERS Safety Report 7155395-5 (Version None)
Quarter: 2010Q4

REPORT INFORMATION
  Report Type: 
  Country: None (occurrence: None)
  Receive Date: 20101214
  Receipt Date: 20101206
  Transmission Date: 20110411
  Serious: No
  Sender: FDA-Public Use
  Company Number: US-BIOGENIDEC-2010BI036483

PATIENT
  Sex: Female

DRUGS (2)
  1. TYSABRI [Suspect]
     Indication: MULTIPLE SCLEROSIS
     Route: 042
     Dates: start: 20100507
  2. AVONEX [Concomitant]
     Indication: MULTIPLE SCLEROSIS
     Route: 030
     Dates: start: 19971110

REACTIONS (11)
  - CARPAL TUNNEL SYNDROME [None]
  - DEHYDRATION [None]
  - DERMATITIS INFECTED [None]
  - DRY SKIN [None]
  - ERYTHEMA [None]
  - LOWER EXTREMITY MASS [None]
  - ONYCHALGIA [None]
  - ONYCHOCLASIS [None]
  - PAIN IN EXTREMITY [None]
  - RASH [None]
  - ROTATOR CUFF REPAIR [None]
